FAERS Safety Report 5319317-1 (Version None)
Quarter: 2007Q2

REPORT INFORMATION
  Report Type: 
  Country: None (occurrence: None)
  Receive Date: 20070508
  Receipt Date: 20070427
  Transmission Date: 20071010
  Serious: Yes (Hospitalization, Other)
  Sender: FDA-Public Use
  Company Number: BR-PFIZER INC-2006048490

PATIENT
  Age: 9 Year
  Sex: Female

DRUGS (6)
  1. SILDENAFIL (PAH) [Suspect]
     Indication: PULMONARY HYPERTENSION
     Route: 048
  2. CAPTOPRIL [Concomitant]
     Route: 065
  3. FUROSEMIDE [Concomitant]
     Route: 065
  4. DIGOXIN [Concomitant]
     Route: 065
  5. MAREVAN FORTE [Concomitant]
     Route: 065
  6. ALDACTONE [Concomitant]
     Route: 065

REACTIONS (4)
  - CARDIAC FAILURE [None]
  - HYPOTENSION [None]
  - PNEUMONIA PNEUMOCOCCAL [None]
  - PULMONARY HYPERTENSION [None]
